FAERS Safety Report 5254268-2 (Version None)
Quarter: 2007Q1

REPORT INFORMATION
  Report Type: 
  Country: None (occurrence: None)
  Receive Date: 20070302
  Receipt Date: 20070301
  Transmission Date: 20070707
  Serious: Yes (Other)
  Sender: FDA-Public Use
  Company Number: CA-GLAXOSMITHKLINE-A0641532A

PATIENT

DRUGS (1)
  1. VALTREX [Suspect]
     Route: 048
     Dates: start: 20070226

REACTIONS (3)
  - DYSPHAGIA [None]
  - FACIAL PALSY [None]
  - MASTICATION DISORDER [None]
